FAERS Safety Report 8798822 (Version 10)
Quarter: 2014Q3

REPORT INFORMATION
  Report Type: Spontaneous
  Country: US (occurrence: US)
  Receive Date: 20120920
  Receipt Date: 20140702
  Transmission Date: 20150326
  Serious: Yes (Life-Threatening, Hospitalization, Other)
  Sender: FDA-Public Use
  Company Number: US-GLAXOSMITHKLINE-A0990806A

PATIENT
  Age: 69 Year
  Sex: Female
  Weight: 65.5 kg

DRUGS (18)
  1. LASIX [Concomitant]
     Active Substance: FUROSEMIDE
     Dosage: 20MG PER DAY
     Route: 048
  2. CLARITIN [Concomitant]
     Active Substance: LORATADINE
     Dosage: 10MG AS REQUIRED
     Route: 048
  3. VELETRI [Concomitant]
     Active Substance: EPOPROSTENOL
  4. KENALOG [Concomitant]
     Active Substance: TRIAMCINOLONE ACETONIDE
  5. ADCIRCA [Concomitant]
     Active Substance: TADALAFIL
     Dosage: 20MG PER DAY
     Route: 048
  6. IMURAN [Concomitant]
     Active Substance: AZATHIOPRINE
  7. TRACLEER [Concomitant]
     Active Substance: BOSENTAN\BOSENTAN MONOHYDRATE
  8. FLOLAN [Suspect]
     Active Substance: EPOPROSTENOL SODIUM
     Indication: COR PULMONALE CHRONIC
     Dosage: 28NGKM CONTINUOUS
     Route: 042
     Dates: start: 20100222
  9. CELLCEPT [Suspect]
     Active Substance: MYCOPHENOLATE MOFETIL\MYCOPHENOLATE MOFETIL HYDROCHLORIDE
     Indication: ARTHRALGIA
     Route: 048
  10. DELTASONE [Concomitant]
     Active Substance: PREDNISONE
  11. PLAQUENIL [Suspect]
     Active Substance: HYDROXYCHLOROQUINE SULFATE
     Indication: ARTHRALGIA
     Dosage: 200MG PER DAY
     Route: 048
  12. AMBIEN [Concomitant]
     Active Substance: ZOLPIDEM TARTRATE
  13. OXYGEN. [Concomitant]
     Active Substance: OXYGEN
  14. BABY ASPIRIN [Concomitant]
     Active Substance: ASPIRIN
  15. ULTRAM [Concomitant]
     Active Substance: TRAMADOL HYDROCHLORIDE
  16. OCUVITE PRESERVISION [Concomitant]
     Dosage: 1TAB TWICE PER DAY
  17. KLOR-CON [Concomitant]
     Active Substance: POTASSIUM CHLORIDE
     Dosage: 20MEQ PER DAY
  18. FLONASE [Concomitant]
     Active Substance: FLUTICASONE PROPIONATE

REACTIONS (17)
  - Hypoaesthesia [Recovered/Resolved]
  - Flushing [Recovering/Resolving]
  - Ear infection [Unknown]
  - Oedema peripheral [Recovering/Resolving]
  - Catheterisation cardiac [Unknown]
  - Hypertension [Recovering/Resolving]
  - Asthenia [Recovered/Resolved]
  - Diarrhoea [Recovering/Resolving]
  - Left ventricular dysfunction [Recovering/Resolving]
  - Catheter site discharge [Recovered/Resolved]
  - Medical device complication [Recovered/Resolved]
  - Upper respiratory tract infection [Recovering/Resolving]
  - Ejection fraction decreased [Recovering/Resolving]
  - Dizziness [Recovered/Resolved]
  - Investigation [Recovering/Resolving]
  - Tachycardia [Unknown]
  - Right ventricular heave [Recovering/Resolving]

NARRATIVE: CASE EVENT DATE: 20120820
